FAERS Safety Report 12348584 (Version 1)
Quarter: 2016Q2

REPORT INFORMATION
  Report Type: Spontaneous
  Country: US (occurrence: US)
  Receive Date: 20160509
  Receipt Date: 20160509
  Transmission Date: 20160815
  Serious: No
  Sender: FDA-Public Use
  Company Number: US-ACTELION-A-US2016-135659

PATIENT
  Age: 13 Year
  Sex: Female

DRUGS (14)
  1. MAALOX ANTACID [Concomitant]
     Active Substance: ALUMINUM HYDROXIDE\DIMETHICONE\MAGNESIUM HYDROXIDE
  2. PREVACID [Concomitant]
     Active Substance: LANSOPRAZOLE
  3. WARFARIN [Concomitant]
     Active Substance: WARFARIN
  4. FERROUS SULFATE. [Concomitant]
     Active Substance: FERROUS SULFATE
  5. COLACE [Concomitant]
     Active Substance: DOCUSATE SODIUM
  6. DIURIL [Concomitant]
     Active Substance: CHLOROTHIAZIDE
  7. DIGOXIN. [Concomitant]
     Active Substance: DIGOXIN
  8. IRON [Concomitant]
     Active Substance: IRON
  9. MIDODRINE [Concomitant]
     Active Substance: MIDODRINE
  10. REMODULIN [Concomitant]
     Active Substance: TREPROSTINIL
  11. OPSUMIT [Suspect]
     Active Substance: MACITENTAN
     Indication: PULMONARY ARTERIAL HYPERTENSION
     Dosage: 10 MG, QD
     Route: 048
  12. MULTIVITAMIN [Concomitant]
     Active Substance: VITAMINS
  13. ADCIRCA [Concomitant]
     Active Substance: TADALAFIL
  14. LASIX [Concomitant]
     Active Substance: FUROSEMIDE

REACTIONS (1)
  - Infection [Recovered/Resolved]

NARRATIVE: CASE EVENT DATE: 20160427
